FAERS Safety Report 17049354 (Version 1)
Quarter: 2019Q4

REPORT INFORMATION
  Report Type: Spontaneous
  Country: US (occurrence: US)
  Receive Date: 20191021
  Receipt Date: 20191021
  Transmission Date: 20200122
  Serious: Yes (Hospitalization)
  Sender: FDA-Public Use
  Company Number: None

PATIENT
  Age: 56 Year
  Sex: Female

DRUGS (1)
  1. CREST WHITENING SYSTEMS STRIPS WHITESTRIPS 1 HOUR EXPRESS NO FLAVOR [Suspect]
     Active Substance: HYDROGEN PEROXIDE
     Dosage: ?          OTHER ROUTE:INTRAORAL?
     Dates: start: 201909

REACTIONS (7)
  - Skin mass [None]
  - Oral pain [None]
  - Swelling face [None]
  - Oral disorder [None]
  - Mouth swelling [None]
  - Facial pain [None]
  - Loose tooth [None]
